FAERS Safety Report 21468407 (Version 1)
Quarter: 2022Q4

REPORT INFORMATION
  Report Type: Spontaneous
  Country: US (occurrence: None)
  Receive Date: 20221015
  Receipt Date: 20221015
  Transmission Date: 20230112
  Serious: Yes (Hospitalization)
  Sender: FDA-Public Use
  Company Number: None

PATIENT
  Age: 39 Year
  Sex: Female

DRUGS (11)
  1. TOBI PODHALER [Suspect]
     Active Substance: TOBRAMYCIN
     Indication: Cystic fibrosis
     Dosage: FREQUENCY : AS DIRECTED;?
     Route: 055
     Dates: start: 20220706
  2. TOBI PODHALER [Suspect]
     Active Substance: TOBRAMYCIN
     Dosage: FREQUENCY : AS DIRECTED;?
     Route: 055
  3. COMPLETE FORM SOFTGEL [Concomitant]
  4. FLUTICASONE/SALM INH [Concomitant]
  5. LEVALBUTEROL [Concomitant]
     Active Substance: LEVALBUTEROL
  6. PANTRAZOLE SOD [Concomitant]
  7. VITAMIN A [Concomitant]
     Active Substance: VITAMIN A
  8. VITAMIN D2 [Concomitant]
     Active Substance: ERGOCALCIFEROL
  9. VITAMIN D3 [Concomitant]
     Active Substance: CHOLECALCIFEROL
  10. VITAMIN E SOFTGEL [Concomitant]
  11. XOPENEX HFA AER [Concomitant]

REACTIONS (2)
  - Pneumonia [None]
  - Condition aggravated [None]

NARRATIVE: CASE EVENT DATE: 20221007
